FAERS Safety Report 9540610 (Version 1)
Quarter: 2013Q3

REPORT INFORMATION
  Report Type: Spontaneous
  Country: JP (occurrence: JP)
  Receive Date: 20130920
  Receipt Date: 20130920
  Transmission Date: 20140515
  Serious: Yes (Hospitalization)
  Sender: FDA-Public Use
  Company Number: JP-BAUSCH-BL-2013-005023

PATIENT
  Age: 73 Year
  Sex: Male

DRUGS (6)
  1. BRONUCK OPHTHALMIC SOLUTION 0.1% [Suspect]
     Indication: POSTOPERATIVE CARE
     Route: 047
     Dates: start: 200404
  2. BRONUCK OPHTHALMIC SOLUTION 0.1% [Suspect]
     Indication: CATARACT OPERATION
  3. LEVOFLOXACIN [Concomitant]
     Indication: POSTOPERATIVE CARE
  4. LEVOFLOXACIN [Concomitant]
     Indication: CATARACT OPERATION
  5. HYALURONATE OPHTHALMIC SOLUTION [Concomitant]
     Indication: POSTOPERATIVE CARE
  6. HYALURONATE OPHTHALMIC SOLUTION [Concomitant]
     Indication: CATARACT OPERATION

REACTIONS (1)
  - Ulcerative keratitis [Recovered/Resolved]
